FAERS Safety Report 8332834-5 (Version None)
Quarter: 2012Q2

REPORT INFORMATION
  Report Type: 
  Country: None (occurrence: None)
  Receive Date: 20120503
  Receipt Date: 20120423
  Transmission Date: 20120825
  Serious: Yes (Hospitalization)
  Sender: FDA-Public Use
  Company Number: US-BAYER-2011-123563

PATIENT
  Age: 26 Year
  Sex: Female
  Weight: 72.562 kg

DRUGS (7)
  1. IBUPROFEN [Concomitant]
     Dosage: 200 MG, 3 TABS (INTERPRETED AS TABLETS) EVERY 6 HOURS
     Route: 048
  2. YAZ [Suspect]
     Indication: ACNE
     Dosage: UNK
     Dates: start: 20070701, end: 20070801
  3. HYDROCODONE BITARTRATE AND ACETAMINOPHEN [Concomitant]
     Dosage: UNK
     Route: 048
     Dates: start: 20070615
  4. PROMETHEGAN [Concomitant]
     Dosage: UNK
     Route: 054
     Dates: start: 20070615
  5. VICKS DAYQUIL SINUS [Concomitant]
     Route: 048
  6. YAZ [Suspect]
     Indication: PREMENSTRUAL SYNDROME
  7. OXYCODONE HCL AND ACETAMINOPHEN [Concomitant]

REACTIONS (8)
  - DISCOMFORT [None]
  - PAIN [None]
  - DYSPNOEA [None]
  - PULMONARY EMBOLISM [None]
  - EMOTIONAL DISTRESS [None]
  - PANIC ATTACK [None]
  - GENERAL PHYSICAL HEALTH DETERIORATION [None]
  - ANXIETY [None]
